FAERS Safety Report 9253264 (Version 1)
Quarter: 2013Q2

REPORT INFORMATION
  Report Type: Spontaneous
  Country: FR (occurrence: FR)
  Receive Date: 20130424
  Receipt Date: 20130424
  Transmission Date: 20140414
  Serious: Yes (Death, Other)
  Sender: FDA-Public Use
  Company Number: FR-ELI_LILLY_AND_COMPANY-FR201304006089

PATIENT
  Age: 62 Year
  Sex: Male

DRUGS (6)
  1. EFIENT [Suspect]
     Dosage: UNK
     Route: 048
     Dates: start: 20121005, end: 20121005
  2. KARDEGIC [Concomitant]
     Dosage: 75 MG, QD
     Dates: end: 20121005
  3. HEPARINE SODIQUE [Concomitant]
     Indication: HAEMODYNAMIC INSTABILITY
     Dosage: 5000 IU, SINGLE
     Route: 042
     Dates: start: 20121005, end: 20121005
  4. ASPEGIC [Concomitant]
     Indication: HAEMODYNAMIC INSTABILITY
     Dosage: 250 MG, SINGLE
     Route: 042
     Dates: start: 20121005
  5. DISCOTRINE [Concomitant]
     Route: 062
  6. TENORMINE [Concomitant]
     Dosage: UNK

REACTIONS (6)
  - Cerebral haemorrhage [Fatal]
  - Pericardial haemorrhage [Fatal]
  - Pulmonary haemorrhage [Fatal]
  - Cardio-respiratory arrest [Fatal]
  - Cerebral artery thrombosis [Not Recovered/Not Resolved]
  - Pericardial effusion [Not Recovered/Not Resolved]
